FAERS Safety Report 16451707 (Version 2)
Quarter: 2019Q3

REPORT INFORMATION
  Report Type: Spontaneous
  Country: US (occurrence: US)
  Receive Date: 20190619
  Receipt Date: 20190717
  Transmission Date: 20191004
  Serious: No
  Sender: FDA-Public Use
  Company Number: US-GLAXOSMITHKLINE-US2019109550

PATIENT
  Age: 29 Year
  Sex: Female

DRUGS (1)
  1. BREO ELLIPTA [Suspect]
     Active Substance: FLUTICASONE FUROATE\VILANTEROL TRIFENATATE
     Indication: ASTHMA
     Dosage: 1 PUFF(S), QD
     Route: 065
     Dates: start: 20190610, end: 20190615

REACTIONS (6)
  - Visual impairment [Unknown]
  - Nausea [Recovered/Resolved]
  - Headache [Recovering/Resolving]
  - Cough [Recovered/Resolved]
  - Dyspnoea [Recovered/Resolved]
  - Aphasia [Unknown]

NARRATIVE: CASE EVENT DATE: 20190611
